FAERS Safety Report 15508201 (Version 1)
Quarter: 2018Q4

REPORT INFORMATION
  Report Type: Spontaneous
  Country: US (occurrence: US)
  Receive Date: 20181016
  Receipt Date: 20181016
  Transmission Date: 20190205
  Serious: Yes (Death, Other)
  Sender: FDA-Public Use
  Company Number: US-PFIZER INC-2018156116

PATIENT
  Sex: Male

DRUGS (29)
  1. DIOVAN [Concomitant]
     Active Substance: VALSARTAN
     Indication: HYPERTENSION
     Dosage: UNK
     Dates: start: 2009, end: 2010
  2. ATORVASTATIN [Concomitant]
     Active Substance: ATORVASTATIN
     Indication: BLOOD CHOLESTEROL INCREASED
     Dosage: UNK
     Dates: start: 2012, end: 2013
  3. VALSARTAN. [Concomitant]
     Active Substance: VALSARTAN
     Indication: HYPERTENSION
     Dosage: UNK
     Dates: start: 2009, end: 2013
  4. NEXIUM [Suspect]
     Active Substance: ESOMEPRAZOLE MAGNESIUM
     Indication: GASTROOESOPHAGEAL REFLUX DISEASE
     Dosage: 40 MG, QD
     Route: 048
     Dates: start: 2010, end: 2013
  5. WARFARIN [Concomitant]
     Active Substance: WARFARIN
     Indication: CORONARY ARTERY DISEASE
     Dosage: UNK
     Dates: start: 2011, end: 2013
  6. ASPIRIN [ACETYLSALICYLIC ACID] [Concomitant]
     Active Substance: ASPIRIN
     Indication: CARDIAC DISORDER
     Dosage: UNK
     Dates: start: 2009, end: 2013
  7. ACETAMINOPHEN. [Concomitant]
     Active Substance: ACETAMINOPHEN
     Indication: PAIN
     Dosage: UNK
     Dates: start: 2011, end: 2013
  8. HUMALOG [Concomitant]
     Active Substance: INSULIN LISPRO
     Indication: DIABETES MELLITUS
     Dosage: UNK
     Dates: start: 2011
  9. PANTOPRAZOLE [Suspect]
     Active Substance: PANTOPRAZOLE
     Indication: GASTROOESOPHAGEAL REFLUX DISEASE
     Dosage: 40 MG, QD
     Route: 048
     Dates: start: 2011
  10. OMEPRAZOLE. [Suspect]
     Active Substance: OMEPRAZOLE
     Indication: PEPTIC ULCER
     Dosage: 20 MG, BID
     Route: 048
     Dates: start: 2008, end: 2013
  11. ROSUVASTATIN. [Concomitant]
     Active Substance: ROSUVASTATIN
     Indication: CEREBROVASCULAR ACCIDENT
     Dosage: UNK
     Dates: start: 2009, end: 2013
  12. CARVEDILOL. [Concomitant]
     Active Substance: CARVEDILOL
     Indication: HYPERTENSION
     Dosage: UNK
     Dates: start: 2008, end: 2013
  13. CIPROFLOXACIN. [Concomitant]
     Active Substance: CIPROFLOXACIN
     Indication: INFECTION
     Dosage: UNK
     Dates: start: 2008
  14. PREVACID [Suspect]
     Active Substance: LANSOPRAZOLE
     Indication: GASTROOESOPHAGEAL REFLUX DISEASE
     Dosage: 30 MG, QD
     Route: 048
     Dates: start: 2010, end: 2013
  15. MINOCYCLINE [Concomitant]
     Active Substance: MINOCYCLINE\MINOCYCLINE HYDROCHLORIDE
     Indication: INFECTION
     Dosage: UNK
     Dates: start: 2013
  16. SULFAMETHOXAZOLE W/TRIMETHOPRIM [Concomitant]
     Active Substance: SULFAMETHOXAZOLE\TRIMETHOPRIM
     Indication: INFECTION
     Dosage: UNK
     Dates: start: 2013
  17. JANUVIA [Concomitant]
     Active Substance: SITAGLIPTIN PHOSPHATE
     Indication: DIABETES MELLITUS
     Dosage: UNK
     Dates: start: 2010, end: 2011
  18. FUROSEMIDE. [Concomitant]
     Active Substance: FUROSEMIDE
     Indication: RENAL DISORDER
  19. LEVOTHYROXINE. [Concomitant]
     Active Substance: LEVOTHYROXINE
     Indication: HYPOTHYROIDISM
     Dosage: UNK
     Dates: start: 2009, end: 2013
  20. GABAPENTIN. [Concomitant]
     Active Substance: GABAPENTIN
     Indication: ANALGESIC THERAPY
     Dosage: UNK
     Dates: start: 2011
  21. AZITHROMYCIN ANHYDROUS. [Concomitant]
     Active Substance: AZITHROMYCIN ANHYDROUS
     Indication: INFECTION
     Dosage: UNK
     Dates: start: 2011
  22. FUROSEMIDE. [Concomitant]
     Active Substance: FUROSEMIDE
     Indication: CARDIAC FAILURE CONGESTIVE
  23. AMLODIPINE [Concomitant]
     Active Substance: AMLODIPINE BESYLATE
     Indication: HYPERTENSION
     Dosage: UNK
     Dates: start: 2009, end: 2013
  24. RANITIDINE. [Concomitant]
     Active Substance: RANITIDINE
     Dosage: UNK
     Dates: start: 2011
  25. FUROSEMIDE. [Concomitant]
     Active Substance: FUROSEMIDE
     Indication: OEDEMA
     Dosage: UNK
     Dates: start: 2009, end: 2013
  26. ACYCLOVIR [ACICLOVIR] [Concomitant]
     Active Substance: ACYCLOVIR
     Indication: HERPES VIRUS INFECTION
     Dosage: UNK
     Dates: start: 2011
  27. VOLTAREN [DICLOFENAC] [Concomitant]
     Active Substance: DICLOFENAC SODIUM
     Indication: PAIN
     Dosage: UNK
     Dates: start: 2013
  28. ZOVIRAX [ACICLOVIR] [Concomitant]
     Indication: HERPES VIRUS INFECTION
     Dosage: UNK
     Dates: start: 2013
  29. GLIPIZIDE. [Concomitant]
     Active Substance: GLIPIZIDE
     Indication: DIABETES MELLITUS
     Dosage: UNK
     Dates: start: 2009, end: 2013

REACTIONS (5)
  - Acute myocardial infarction [Fatal]
  - Neuropathy peripheral [Fatal]
  - Gastrointestinal haemorrhage [Fatal]
  - Diabetes mellitus [Fatal]
  - Chronic kidney disease [Fatal]

NARRATIVE: CASE EVENT DATE: 2011
